FAERS Safety Report 11063813 (Version 1)
Quarter: 2015Q2

REPORT INFORMATION
  Report Type: Spontaneous
  Country: US (occurrence: US)
  Receive Date: 20150424
  Receipt Date: 20150424
  Transmission Date: 20150821
  Serious: No
  Sender: FDA-Public Use
  Company Number: US-ELI_LILLY_AND_COMPANY-US201504000294

PATIENT
  Sex: Female

DRUGS (2)
  1. HUMALOG [Suspect]
     Active Substance: INSULIN LISPRO
     Indication: TYPE 2 DIABETES MELLITUS
     Dosage: 8 U, TID
     Route: 065
     Dates: start: 20150115
  2. LANTUS [Concomitant]
     Active Substance: INSULIN GLARGINE
     Dosage: 9 U, EACH EVENING

REACTIONS (2)
  - Blood glucose fluctuation [Unknown]
  - Hunger [Unknown]
